FAERS Safety Report 6086503-5 (Version None)
Quarter: 2009Q1

REPORT INFORMATION
  Report Type: 
  Country: None (occurrence: None)
  Receive Date: 20090223
  Receipt Date: 20090217
  Transmission Date: 20090719
  Serious: Yes (Disabling)
  Sender: FDA-Public Use
  Company Number: FR-JNJFOC-20081100724

PATIENT
  Age: 78 Year
  Sex: Male

DRUGS (5)
  1. LEVOFLOXACIN [Suspect]
     Indication: PROPHYLAXIS
     Route: 048
  2. VERAPAMIL HYDROCHLORIDE [Concomitant]
     Indication: TACHYCARDIA
     Route: 048
  3. XYZAL [Concomitant]
     Indication: RHINITIS ALLERGIC
     Dosage: 1 U
     Route: 048
  4. NASONEX [Concomitant]
     Indication: RHINITIS ALLERGIC
     Dosage: 1 U
     Route: 045
  5. TAHOR [Concomitant]
     Indication: DYSLIPIDAEMIA
     Route: 048

REACTIONS (5)
  - ARTHROPATHY [None]
  - BACK PAIN [None]
  - GAIT DISTURBANCE [None]
  - PAIN IN EXTREMITY [None]
  - TENDONITIS [None]
